FAERS Safety Report 16000370 (Version 5)
Quarter: 2019Q2

REPORT INFORMATION
  Report Type: Spontaneous
  Country: US (occurrence: US)
  Receive Date: 20190225
  Receipt Date: 20190611
  Transmission Date: 20190711
  Serious: Yes (Other)
  Sender: FDA-Public Use
  Company Number: US-PFIZER INC-2019078030

PATIENT
  Age: 96 Year
  Sex: Female

DRUGS (1)
  1. LATANOPROST. [Suspect]
     Active Substance: LATANOPROST
     Indication: GLAUCOMA
     Dosage: 1 DROP, EACH EYE, DAILY
     Route: 047

REACTIONS (5)
  - Drug intolerance [Unknown]
  - Tremor [Unknown]
  - Drug hypersensitivity [Unknown]
  - Blindness [Recovered/Resolved]
  - Dysgraphia [Unknown]
